FAERS Safety Report 18606780 (Version 1)
Quarter: 2020Q4

REPORT INFORMATION
  Report Type: Spontaneous
  Country: JP (occurrence: JP)
  Receive Date: 20201211
  Receipt Date: 20201211
  Transmission Date: 20210114
  Serious: Yes (Life-Threatening, Other)
  Sender: FDA-Public Use
  Company Number: JP-ASTRAZENECA-2020SF64852

PATIENT
  Age: 58 Year
  Sex: Male

DRUGS (5)
  1. CARBOPLATIN. [Concomitant]
     Active Substance: CARBOPLATIN
     Indication: SMALL CELL LUNG CANCER
     Route: 065
  2. ETOPOSIDE. [Concomitant]
     Active Substance: ETOPOSIDE
     Indication: SMALL CELL LUNG CANCER
     Dosage: DAY 1, 2 AND 3 FOR EACH CYCLE
     Route: 065
  3. IMFINZI [Suspect]
     Active Substance: DURVALUMAB
     Indication: SMALL CELL LUNG CANCER
     Route: 041
  4. CISPLATIN. [Concomitant]
     Active Substance: CISPLATIN
     Indication: SMALL CELL LUNG CANCER
     Route: 065
  5. ETOPOSIDE. [Concomitant]
     Active Substance: ETOPOSIDE
     Indication: SMALL CELL LUNG CANCER
     Dosage: DAY 1, 2 AND 3 FOR EACH CYCLE
     Route: 065

REACTIONS (7)
  - Therapeutic response decreased [Unknown]
  - Neutropenia [Unknown]
  - Leukopenia [Unknown]
  - Decreased appetite [Recovered/Resolved]
  - Constipation [Recovered/Resolved]
  - Thrombocytopenia [Unknown]
  - Anaemia [Unknown]
